FAERS Safety Report 16061856 (Version 1)
Quarter: 2019Q1

REPORT INFORMATION
  Report Type: Report from Study
  Country: None (occurrence: CA)
  Receive Date: 20190312
  Receipt Date: 20190312
  Transmission Date: 20190418
  Serious: Yes (Other)
  Sender: FDA-Public Use
  Company Number: CA-ABBVIE-19S-028-2698205-00

PATIENT
  Age: 36 Year
  Sex: Female

DRUGS (2)
  1. LUPRON DEPOT [Suspect]
     Active Substance: LEUPROLIDE ACETATE
     Indication: UTERINE LEIOMYOMA
     Route: 030
     Dates: start: 20190111, end: 20190212
  2. SYNTHROID [Concomitant]
     Active Substance: LEVOTHYROXINE SODIUM
     Indication: PRODUCT USED FOR UNKNOWN INDICATION

REACTIONS (1)
  - Surgery [Unknown]

NARRATIVE: CASE EVENT DATE: 20190225
